FAERS Safety Report 21542373 (Version 1)
Quarter: 2022Q4

REPORT INFORMATION
  Report Type: Other
  Country: None (occurrence: US)
  Receive Date: 20221102
  Receipt Date: 20221102
  Transmission Date: 20230112
  Serious: Yes (Hospitalization)
  Sender: FDA-Public Use
  Company Number: US-XGen Pharmaceuticals DJB, Inc.-2134415

PATIENT
  Age: 17 Year
  Sex: Male

DRUGS (2)
  1. CLONIDINE HYDROCHLORIDE [Suspect]
     Active Substance: CLONIDINE HYDROCHLORIDE
     Route: 048
  2. DEXTROAMPHETAMINE [Interacting]
     Active Substance: DEXTROAMPHETAMINE
     Route: 048

REACTIONS (1)
  - Nervous system disorder [Recovering/Resolving]
